FAERS Safety Report 5136269-8 (Version None)
Quarter: 2006Q4

REPORT INFORMATION
  Report Type: 
  Country: None (occurrence: None)
  Receive Date: 20061027
  Receipt Date: 20061006
  Transmission Date: 20070319
  Serious: Yes (Hospitalization)
  Sender: FDA-Public Use
  Company Number: JP-AVENTIS-200613100JP

PATIENT
  Age: 80 Year
  Sex: Female

DRUGS (5)
  1. LASIX [Suspect]
     Indication: CARDIAC FAILURE
     Route: 048
     Dates: end: 20060629
  2. ALLOPURINOL [Suspect]
     Indication: HYPERURICAEMIA
     Route: 048
     Dates: start: 20060529, end: 20060629
  3. RENIVACE [Suspect]
     Indication: HYPERTENSION
     Route: 048
     Dates: end: 20060629
  4. ADALAT [Suspect]
     Indication: HYPERTENSION
     Route: 048
     Dates: end: 20060629
  5. PURSENNID                          /00571901/ [Suspect]
     Indication: CONSTIPATION
     Route: 048
     Dates: end: 20060629

REACTIONS (1)
  - STEVENS-JOHNSON SYNDROME [None]
